FAERS Safety Report 17310980 (Version 3)
Quarter: 2020Q1

REPORT INFORMATION
  Report Type: Spontaneous
  Country: CN (occurrence: CN)
  Receive Date: 20200123
  Receipt Date: 20200302
  Transmission Date: 20200409
  Serious: Yes (Hospitalization)
  Sender: FDA-Public Use
  Company Number: CN-ELI_LILLY_AND_COMPANY-CN202001005920

PATIENT
  Age: 67 Year
  Sex: Female
  Weight: 70 kg

DRUGS (1)
  1. HUMALOG MIX50/50 [Suspect]
     Active Substance: INSULIN LISPRO
     Indication: DIABETES MELLITUS
     Dosage: 10 DOSAGE FORM, BID
     Route: 058
     Dates: end: 20200108

REACTIONS (4)
  - Blood glucose increased [Unknown]
  - Product dose omission [Unknown]
  - Hypertension [Unknown]
  - Gastric cancer [Unknown]

NARRATIVE: CASE EVENT DATE: 20200108
